FAERS Safety Report 12236135 (Version 1)
Quarter: 2016Q2

REPORT INFORMATION
  Report Type: Report from Study
  Country: US (occurrence: US)
  Receive Date: 20160404
  Receipt Date: 20160404
  Transmission Date: 20160815
  Serious: Yes (Death, Hospitalization)
  Sender: FDA-Public Use
  Company Number: US-BAYER-2015-363564

PATIENT
  Age: 81 Year
  Sex: Female
  Weight: 86.17 kg

DRUGS (3)
  1. ADEMPAS [Suspect]
     Active Substance: RIOCIGUAT
     Indication: PULMONARY HYPERTENSION
     Dosage: 1 MG, TID
     Route: 048
  2. ADEMPAS [Suspect]
     Active Substance: RIOCIGUAT
     Indication: PULMONARY HYPERTENSION
     Dosage: 0.5 MG, TID
     Route: 048
     Dates: start: 20150225
  3. ADEMPAS [Suspect]
     Active Substance: RIOCIGUAT
     Indication: PULMONARY HYPERTENSION
     Dosage: 0.5 MG, TAKE TWO TABLETS (1 MG) BY MOUTH IN THE MORNING, TAKE ONE TABLET (0.5 MG) BY MOUTH IN THE AF
     Route: 048

REACTIONS (6)
  - Fluid retention [None]
  - Respiratory failure [Unknown]
  - Death [Fatal]
  - Dyspnoea [None]
  - Wheezing [None]
  - Loss of consciousness [None]
